FAERS Safety Report 11329902 (Version 1)
Quarter: 2015Q3

REPORT INFORMATION
  Report Type: Spontaneous
  Country: US (occurrence: US)
  Receive Date: 20150803
  Receipt Date: 20150803
  Transmission Date: 20151125
  Serious: No
  Sender: FDA-Public Use
  Company Number: US-PFIZER INC-2015253366

PATIENT
  Age: 40 Year
  Sex: Female
  Weight: 57 kg

DRUGS (1)
  1. GEODON [Suspect]
     Active Substance: ZIPRASIDONE HYDROCHLORIDE\ZIPRASIDONE MESYLATE
     Indication: BIPOLAR DISORDER
     Dosage: 20MG CAPSULE IN THE MORNING AND 40MG AT NIGHT
     Route: 048
     Dates: start: 2014

REACTIONS (5)
  - Blood prolactin increased [Unknown]
  - Menstruation irregular [Not Recovered/Not Resolved]
  - Hormone level abnormal [Unknown]
  - Galactorrhoea [Not Recovered/Not Resolved]
  - Amenorrhoea [Recovered/Resolved]

NARRATIVE: CASE EVENT DATE: 2015
